FAERS Safety Report 5091642-1 (Version None)
Quarter: 2006Q3

REPORT INFORMATION
  Report Type: 
  Country: None (occurrence: None)
  Receive Date: 20060829
  Receipt Date: 20060807
  Transmission Date: 20061208
  Serious: Yes (Hospitalization)
  Sender: FDA-Public Use
  Company Number: JP-SANOFI-SYNTHELABO-A01200606313

PATIENT
  Age: 81 Year
  Sex: Female
  Weight: 42 kg

DRUGS (11)
  1. BUP-4 [Concomitant]
     Indication: DRUG USE FOR UNKNOWN INDICATION
     Dosage: UNK
     Route: 065
  2. CIPROFLOXACIN [Concomitant]
     Indication: URINARY TRACT INFECTION
     Route: 065
     Dates: start: 20060704, end: 20060720
  3. ARTIST [Concomitant]
     Indication: CARDIAC FAILURE CHRONIC
     Route: 065
     Dates: start: 20060619
  4. SELBEX [Concomitant]
     Indication: GASTRIC ULCER
     Route: 065
     Dates: start: 20041116
  5. ISOSORBIDE MONONITRATE [Concomitant]
     Indication: ANGINA PECTORIS
     Route: 065
     Dates: start: 20050720
  6. MERISLON [Concomitant]
     Indication: DIZZINESS
     Route: 065
     Dates: start: 20040921, end: 20060803
  7. SIGMART [Concomitant]
     Indication: ANGINA PECTORIS
     Route: 065
     Dates: start: 20040329
  8. CEROCRAL [Concomitant]
     Indication: DIZZINESS
     Route: 065
     Dates: start: 20040329
  9. PLAVIX [Suspect]
     Indication: PROPHYLAXIS
     Route: 048
     Dates: start: 20060620, end: 20060720
  10. PLAVIX [Suspect]
     Indication: STENT PLACEMENT
     Route: 048
     Dates: start: 20060620, end: 20060720
  11. PLETAL [Concomitant]
     Indication: PERCUTANEOUS CORONARY INTERVENTION
     Route: 065
     Dates: start: 20050107

REACTIONS (3)
  - CHOLECYSTITIS [None]
  - PANCYTOPENIA [None]
  - PYELONEPHRITIS [None]
